FAERS Safety Report 12454831 (Version 1)
Quarter: 2016Q2

REPORT INFORMATION
  Report Type: Spontaneous
  Country: US (occurrence: US)
  Receive Date: 20160610
  Receipt Date: 20160610
  Transmission Date: 20160815
  Serious: Yes (Death)
  Sender: FDA-Public Use
  Company Number: US-NAPPMUNDI-USA-2007-0026772

PATIENT
  Age: 33 Year
  Sex: Male

DRUGS (2)
  1. MORPHINE SULFATE (SIMILAR TO NDA 19-516) [Suspect]
     Active Substance: MORPHINE SULFATE
     Indication: DRUG ABUSER
     Dosage: UNK, UNK
  2. COCAINE [Suspect]
     Active Substance: COCAINE
     Indication: DRUG ABUSE
     Dosage: UNK, UNK

REACTIONS (3)
  - Overdose [Fatal]
  - Substance abuse [Fatal]
  - Cardiac disorder [Fatal]

NARRATIVE: CASE EVENT DATE: 199712
